FAERS Safety Report 17277436 (Version 1)
Quarter: 2020Q1

REPORT INFORMATION
  Report Type: Spontaneous
  Country: US (occurrence: US)
  Receive Date: 20191226
  Receipt Date: 20191226
  Transmission Date: 20200409
  Serious: Yes (Hospitalization)
  Sender: FDA-Public Use
  Company Number: None

PATIENT
  Age: 72 Year
  Sex: Female

DRUGS (3)
  1. METHOTREXATE 50MG/2ML MDV (2=1) [Suspect]
     Active Substance: METHOTREXATE
     Dosage: ?          OTHER DOSE:50/2 MG/ML;?
     Dates: start: 20190321
  2. ENBREL [Suspect]
     Active Substance: ETANERCEPT
     Indication: PSORIATIC ARTHROPATHY
     Dates: start: 20191107
  3. HUMIRA [Concomitant]
     Active Substance: ADALIMUMAB

REACTIONS (2)
  - Therapy cessation [None]
  - Shoulder operation [None]
